FAERS Safety Report 12095615 (Version 1)
Quarter: 2016Q1

REPORT INFORMATION
  Report Type: Report from Study
  Country: US (occurrence: US)
  Receive Date: 20160219
  Receipt Date: 20160219
  Transmission Date: 20160526
  Serious: Yes (Hospitalization)
  Sender: FDA-Public Use
  Company Number: US-BIOGEN-2014BI128990

PATIENT
  Age: 75 Year
  Sex: Female

DRUGS (1)
  1. AVONEX [Suspect]
     Active Substance: INTERFERON BETA-1A
     Indication: MULTIPLE SCLEROSIS
     Route: 030
     Dates: start: 20060510

REACTIONS (23)
  - Gait disturbance [Not Recovered/Not Resolved]
  - Hip fracture [Recovered/Resolved]
  - Malaise [Recovered/Resolved]
  - Confusional state [Not Recovered/Not Resolved]
  - Muscular weakness [Not Recovered/Not Resolved]
  - Drug hypersensitivity [Unknown]
  - Ankle fracture [Recovered/Resolved]
  - Haematoma [Recovered/Resolved]
  - Feeling abnormal [Not Recovered/Not Resolved]
  - Dizziness [Recovered/Resolved]
  - Fungal infection [Recovered/Resolved]
  - Depressed mood [Recovered/Resolved]
  - Pyrexia [Not Recovered/Not Resolved]
  - Wound [Recovered/Resolved]
  - Femur fracture [Recovered/Resolved]
  - Fall [Recovered/Resolved]
  - Overdose [Recovered/Resolved]
  - Limb injury [Recovered/Resolved]
  - Dysstasia [Not Recovered/Not Resolved]
  - Loss of control of legs [Not Recovered/Not Resolved]
  - Multiple sclerosis relapse [Recovered/Resolved]
  - Loss of consciousness [Recovered/Resolved]
  - Musculoskeletal stiffness [Recovered/Resolved]

NARRATIVE: CASE EVENT DATE: 2012
